FAERS Safety Report 15455322 (Version 1)
Quarter: 2018Q3

REPORT INFORMATION
  Report Type: Spontaneous
  Country: US (occurrence: US)
  Receive Date: 20180927
  Receipt Date: 20180927
  Transmission Date: 20181010
  Serious: Yes (Hospitalization)
  Sender: FDA-Public Use
  Company Number: None

PATIENT
  Age: 17 Year
  Sex: Female
  Weight: 43.5 kg

DRUGS (18)
  1. ZINECARD [Suspect]
     Active Substance: DEXRAZOXANE HYDROCHLORIDE
     Dates: end: 20180904
  2. IFOSFAMIDE. [Suspect]
     Active Substance: IFOSFAMIDE
     Dates: end: 20180226
  3. MESNA. [Suspect]
     Active Substance: MESNA
     Dates: end: 20180226
  4. PREDNISONE. [Suspect]
     Active Substance: PREDNISONE
     Dates: end: 20171011
  5. GLEEVEC [Suspect]
     Active Substance: IMATINIB MESYLATE
     Dates: end: 20180905
  6. VINCRISTINE SULFATE. [Suspect]
     Active Substance: VINCRISTINE SULFATE
     Dates: end: 20180904
  7. CYCLOPHOSPHAMIDE. [Suspect]
     Active Substance: CYCLOPHOSPHAMIDE
     Dates: end: 20180619
  8. ETOPOSIDE (VP?16) [Suspect]
     Active Substance: ETOPOSIDE
     Dates: end: 20180326
  9. ONCASPAR [Suspect]
     Active Substance: PEGASPARGASE
     Dates: end: 20180828
  10. THIOGUANINE (6?TG) [Suspect]
     Active Substance: THIOGUANINE ANHYDROUS
     Dates: end: 20180702
  11. DAUNORUBICIN [Suspect]
     Active Substance: DAUNORUBICIN
     Dates: end: 20180227
  12. DEXAMETHASONE. [Suspect]
     Active Substance: DEXAMETHASONE
     Dates: end: 20180906
  13. DOXORUBICIN HYDROCHLORIDE. [Suspect]
     Active Substance: DOXORUBICIN HYDROCHLORIDE
     Dates: end: 20180904
  14. CYTARABINE. [Suspect]
     Active Substance: CYTARABINE
     Dates: end: 20180629
  15. METHOTREXATE. [Suspect]
     Active Substance: METHOTREXATE
     Dates: end: 20180821
  16. LEUCOVORIN CALCIUM. [Suspect]
     Active Substance: LEUCOVORIN CALCIUM
     Dates: end: 20180226
  17. MERCAPTOPURINE. [Suspect]
     Active Substance: MERCAPTOPURINE
     Dates: end: 20180820
  18. NEULASTA [Suspect]
     Active Substance: PEGFILGRASTIM
     Dates: end: 20180328

REACTIONS (5)
  - Pancreatitis acute [None]
  - Abdominal pain [None]
  - Dehydration [None]
  - Vomiting [None]
  - Diabetic ketoacidosis [None]

NARRATIVE: CASE EVENT DATE: 20180906
